FAERS Safety Report 16875174 (Version 1)
Quarter: 2019Q4

REPORT INFORMATION
  Report Type: Spontaneous
  Country: ES (occurrence: ES)
  Receive Date: 20191001
  Receipt Date: 20191001
  Transmission Date: 20200122
  Serious: Yes (Death, Hospitalization, Other)
  Sender: FDA-Public Use
  Company Number: ES-EX USA HOLDINGS-EXHL20192391

PATIENT
  Age: 73 Year
  Sex: Female

DRUGS (2)
  1. PREDNISONE. [Suspect]
     Active Substance: PREDNISONE
     Indication: DIARRHOEA HAEMORRHAGIC
     Dosage: 40 MG
     Route: 048
  2. LANSOPRAZOLE. [Suspect]
     Active Substance: LANSOPRAZOLE
     Indication: HIATUS HERNIA
     Dosage: UNKNOWN
     Route: 065

REACTIONS (9)
  - Aspergillus infection [Fatal]
  - Confusional state [Unknown]
  - Constipation [Unknown]
  - Respiratory failure [Fatal]
  - Small intestinal obstruction [Unknown]
  - Diarrhoea haemorrhagic [Unknown]
  - Abdominal pain [Unknown]
  - Hemiparesis [Unknown]
  - Brain abscess [Not Recovered/Not Resolved]
